FAERS Safety Report 24865563 (Version 2)
Quarter: 2025Q1

REPORT INFORMATION
  Report Type: Spontaneous
  Country: US (occurrence: US)
  Receive Date: 20250121
  Receipt Date: 20250217
  Transmission Date: 20250408
  Serious: No
  Sender: NOVARTIS
  Company Number: US-002147023-NVSC2025US006224

PATIENT
  Age: 86 Year
  Sex: Female

DRUGS (1)
  1. LEQVIO [Suspect]
     Active Substance: INCLISIRAN SODIUM
     Indication: Product used for unknown indication
     Route: 065
     Dates: start: 20220622

REACTIONS (3)
  - Arthralgia [Unknown]
  - Gait inability [Unknown]
  - Pain [Unknown]

NARRATIVE: CASE EVENT DATE: 20220622
